FAERS Safety Report 5218726-9 (Version None)
Quarter: 2007Q1

REPORT INFORMATION
  Report Type: 
  Country: None (occurrence: None)
  Receive Date: 20070122
  Receipt Date: 20070118
  Transmission Date: 20070707
  Serious: Yes (Death)
  Sender: FDA-Public Use
  Company Number: 151974USA

PATIENT
  Age: 74 Year
  Sex: Female

DRUGS (6)
  1. COPAXONE [Suspect]
  2. INTERFERON BETA-1A [Suspect]
     Indication: MULTIPLE SCLEROSIS
     Dosage: 18.8571 MCG (44 MCG, 3 IN 1 WK), SUBCUTANEOUS
     Route: 058
     Dates: start: 20020110, end: 20030530
  3. ESTROGENS CONJUGATED [Concomitant]
  4. ALENDRONATE SODIUM [Concomitant]
  5. GABAPENTIN [Concomitant]
  6. CALCIUM [Concomitant]

REACTIONS (1)
  - ACUTE MYELOID LEUKAEMIA [None]
